FAERS Safety Report 10462561 (Version 1)
Quarter: 2014Q3

REPORT INFORMATION
  Report Type: Spontaneous
  Country: US (occurrence: US)
  Receive Date: 20140918
  Receipt Date: 20140918
  Transmission Date: 20150326
  Serious: No
  Sender: FDA-Public Use
  Company Number: US-B.I. PHARMACEUTICALS,INC./RIDGEFIELD-2014-BI-42258BP

PATIENT
  Age: 70 Year
  Sex: Female
  Weight: 44 kg

DRUGS (3)
  1. SPIRIVA [Suspect]
     Active Substance: TIOTROPIUM BROMIDE MONOHYDRATE
     Indication: EMPHYSEMA
     Dosage: 18 MCG
     Route: 055
     Dates: start: 20140804
  2. DILTIAZEM [Concomitant]
     Active Substance: DILTIAZEM
     Indication: HEART RATE INCREASED
     Dosage: 120 MG
     Route: 048
     Dates: start: 2009
  3. CILOSTAZOL. [Concomitant]
     Active Substance: CILOSTAZOL
     Indication: MUSCLE SPASMS
     Dosage: 100 MG
     Route: 048
     Dates: start: 2013

REACTIONS (2)
  - Weight increased [Not Recovered/Not Resolved]
  - Constipation [Not Recovered/Not Resolved]

NARRATIVE: CASE EVENT DATE: 201408
